FAERS Safety Report 20940466 (Version 1)
Quarter: 2022Q2

REPORT INFORMATION
  Report Type: Spontaneous
  Country: FR (occurrence: FR)
  Receive Date: 20220609
  Receipt Date: 20220609
  Transmission Date: 20220721
  Serious: Yes (Other)
  Sender: FDA-Public Use
  Company Number: None

PATIENT
  Age: 84 Year
  Sex: Female

DRUGS (5)
  1. BISOPROLOL FUMARATE [Suspect]
     Active Substance: BISOPROLOL FUMARATE
     Indication: Acute coronary syndrome
     Dosage: 1.25 X2/J
     Route: 048
     Dates: start: 20220521
  2. RAMIPRIL [Suspect]
     Active Substance: RAMIPRIL
     Indication: Acute coronary syndrome
     Dosage: 2.5/J
     Route: 048
     Dates: start: 20220521
  3. PLAVIX [Suspect]
     Active Substance: CLOPIDOGREL BISULFATE
     Indication: Coronary arterial stent insertion
     Dosage: 75 MG LE MATIN
     Route: 048
     Dates: start: 20220521
  4. ELIQUIS [Suspect]
     Active Substance: APIXABAN
     Indication: Atrial fibrillation
     Dosage: 2.5 MG 2X/J
     Route: 048
     Dates: start: 20220521
  5. KARDEGIC [Suspect]
     Active Substance: ASPIRIN DL-LYSINE
     Indication: Coronary arterial stent insertion
     Dosage: 75 MG/J
     Route: 048
     Dates: start: 20220521

REACTIONS (1)
  - Thrombocytopenia [Not Recovered/Not Resolved]

NARRATIVE: CASE EVENT DATE: 20220523
